FAERS Safety Report 17913484 (Version 1)
Quarter: 2020Q2

REPORT INFORMATION
  Report Type: Spontaneous
  Country: US (occurrence: US)
  Receive Date: 20200618
  Receipt Date: 20200618
  Transmission Date: 20200714
  Serious: No
  Sender: FDA-Public Use
  Company Number: US-BAYER-2020-110651

PATIENT
  Age: 41 Year
  Sex: Female

DRUGS (4)
  1. SKYLA [Suspect]
     Active Substance: LEVONORGESTREL
     Indication: MENORRHAGIA
  2. SKYLA [Suspect]
     Active Substance: LEVONORGESTREL
     Indication: DYSMENORRHOEA
  3. KYLEENA [Suspect]
     Active Substance: LEVONORGESTREL
     Indication: CONTRACEPTION
     Dosage: 17.5 ?G PER DAY CONTINUOUSLY
     Route: 015
     Dates: start: 201908
  4. SKYLA [Suspect]
     Active Substance: LEVONORGESTREL
     Indication: CONTRACEPTION
     Dosage: 14 ?G PER DAY CONTINOUSLY
     Route: 015
     Dates: start: 2016, end: 2019

REACTIONS (8)
  - Menstruation irregular [Not Recovered/Not Resolved]
  - Weight increased [Not Recovered/Not Resolved]
  - Abdominal pain lower [Not Recovered/Not Resolved]
  - Chest pain [Not Recovered/Not Resolved]
  - Amenorrhoea [None]
  - Acne [Not Recovered/Not Resolved]
  - Vaginal haemorrhage [None]
  - Tearfulness [Not Recovered/Not Resolved]

NARRATIVE: CASE EVENT DATE: 201910
